FAERS Safety Report 5948410-5 (Version None)
Quarter: 2008Q4

REPORT INFORMATION
  Report Type: 
  Country: None (occurrence: None)
  Receive Date: 20081111
  Receipt Date: 20081110
  Transmission Date: 20090506
  Serious: Yes (Other)
  Sender: FDA-Public Use
  Company Number: A0754376A

PATIENT
  Age: 26 Year
  Sex: Female

DRUGS (1)
  1. NICODERM CQ [Suspect]
     Indication: SMOKING CESSATION THERAPY
     Dosage: 21MG UNKNOWN
     Route: 062
     Dates: start: 20081023, end: 20081023

REACTIONS (4)
  - FEELING HOT [None]
  - MALAISE [None]
  - NAUSEA [None]
  - TOBACCO POISONING [None]
